FAERS Safety Report 26049005 (Version 1)
Quarter: 2025Q4

REPORT INFORMATION
  Report Type: Report from Study
  Country: US (occurrence: US)
  Receive Date: 20251115
  Receipt Date: 20251115
  Transmission Date: 20260118
  Serious: Yes (Hospitalization)
  Sender: ABBVIE
  Company Number: US-ABBVIE-6543108

PATIENT
  Age: 84 Year
  Sex: Female

DRUGS (1)
  1. VENCLEXTA [Suspect]
     Active Substance: VENETOCLAX
     Indication: Acute myeloid leukaemia
     Route: 048
     Dates: start: 202507

REACTIONS (7)
  - Legionella infection [Unknown]
  - Contusion [Unknown]
  - COVID-19 [Unknown]
  - Pneumonia [Recovering/Resolving]
  - Clostridium difficile infection [Unknown]
  - Depression [Unknown]
  - Asthenia [Unknown]

NARRATIVE: CASE EVENT DATE: 20250101
